FAERS Safety Report 4644808-6 (Version None)
Quarter: 2005Q2

REPORT INFORMATION
  Report Type: 
  Country: None (occurrence: None)
  Receive Date: 20050422
  Receipt Date: 20050413
  Transmission Date: 20051028
  Serious: Yes (Hospitalization, Other)
  Sender: FDA-Public Use
  Company Number: 2005054975

PATIENT
  Sex: Male

DRUGS (3)
  1. SILDENAFIL CITRATE [Suspect]
     Indication: ERECTILE DYSFUNCTION
     Dosage: ORAL
     Route: 048
  2. SIMVASTATIN [Concomitant]
  3. RAMIPRIL [Concomitant]

REACTIONS (4)
  - BLINDNESS UNILATERAL [None]
  - OPTIC ISCHAEMIC NEUROPATHY [None]
  - RETINAL ARTERY OCCLUSION [None]
  - RETINAL VEIN OCCLUSION [None]
